FAERS Safety Report 4834573-1 (Version None)
Quarter: 2005Q4

REPORT INFORMATION
  Report Type: 
  Country: None (occurrence: None)
  Receive Date: 20051122
  Receipt Date: 20050407
  Transmission Date: 20060501
  Serious: No
  Sender: FDA-Public Use
  Company Number: US-BRISTOL-MYERS SQUIBB COMPANY-12926804

PATIENT
  Sex: Female

DRUGS (1)
  1. PRAVACHOL [Suspect]
     Indication: BLOOD CHOLESTEROL
     Route: 048

REACTIONS (9)
  - ABDOMINAL PAIN [None]
  - COUGH [None]
  - FATIGUE [None]
  - FLATULENCE [None]
  - HEADACHE [None]
  - POLLAKIURIA [None]
  - RASH [None]
  - RHINITIS [None]
  - SACRAL PAIN [None]
